FAERS Safety Report 5040251-9 (Version None)
Quarter: 2006Q2

REPORT INFORMATION
  Report Type: 
  Country: None (occurrence: None)
  Receive Date: 20060630
  Receipt Date: 20060621
  Transmission Date: 20061013
  Serious: Yes (Other)
  Sender: FDA-Public Use
  Company Number: ES-ABBOTT-06P-144-0336568-00

PATIENT
  Age: 37 Year
  Sex: Female

DRUGS (2)
  1. HUMIRA [Suspect]
     Indication: CROHN'S DISEASE
     Route: 058
     Dates: start: 20060524, end: 20060524
  2. HUMIRA [Suspect]
     Route: 058
     Dates: start: 20060607, end: 20060607

REACTIONS (2)
  - CONFUSIONAL STATE [None]
  - SOMNOLENCE [None]
